FAERS Safety Report 10512628 (Version 2)
Quarter: 2014Q4

REPORT INFORMATION
  Report Type: Spontaneous
  Country: HU (occurrence: HU)
  Receive Date: 20141011
  Receipt Date: 20141011
  Transmission Date: 20150528
  Serious: Yes (Other)
  Sender: FDA-Public Use
  Company Number: PHHY2014HU106044

PATIENT
  Age: 76 Year
  Sex: Female
  Weight: 74 kg

DRUGS (9)
  1. SOTALEX MITE [Concomitant]
     Indication: PRODUCT USED FOR UNKNOWN INDICATION
     Dosage: UNK
     Route: 065
  2. ZOMETA [Concomitant]
     Active Substance: ZOLEDRONIC ACID
     Indication: METASTASES TO BONE
     Dosage: 4 MG/ 100 ML, IN EVERY 4 WEEKS
     Route: 042
     Dates: start: 2012, end: 2013
  3. ZOLEDRONSAEURE TEVA [Concomitant]
     Indication: METASTASES TO BONE
     Dosage: 4 MG/ 100 ML, IN EVERY FOUR WEEKS
     Route: 042
     Dates: start: 201310
  4. PANTACID FLUX [Concomitant]
     Indication: VOMITING
  5. PANTACID FLUX [Concomitant]
     Indication: ABDOMINAL PAIN UPPER
  6. COVEREX [Concomitant]
     Indication: PRODUCT USED FOR UNKNOWN INDICATION
     Dosage: 4 MG, QD
     Route: 065
  7. BONDRONAT [Concomitant]
     Active Substance: IBANDRONIC ACID
     Indication: METASTASES TO BONE
     Dosage: UNK UNK, QD
     Route: 048
     Dates: start: 2013, end: 201310
  8. FEMARA [Suspect]
     Active Substance: LETROZOLE
     Indication: INVASIVE LOBULAR BREAST CARCINOMA
     Dosage: 2.5 MG, QD
     Route: 048
     Dates: start: 2012, end: 201406
  9. PANTACID FLUX [Concomitant]
     Indication: NAUSEA
     Dosage: 20 MG, BID
     Route: 065

REACTIONS (18)
  - Myocardial ischaemia [Unknown]
  - Pyelocaliectasis [Unknown]
  - Liver disorder [Unknown]
  - Localised intraabdominal fluid collection [Unknown]
  - Angina pectoris [Unknown]
  - Renal cyst [Unknown]
  - Dysphagia [Unknown]
  - Aortic arteriosclerosis [Unknown]
  - Hepatic lesion [Unknown]
  - Biliary dilatation [Unknown]
  - Gastrooesophageal reflux disease [Unknown]
  - Malignant neoplasm progression [Not Recovered/Not Resolved]
  - Oesophageal disorder [Unknown]
  - Ascites [Unknown]
  - Breast cancer [Not Recovered/Not Resolved]
  - Metastases to bone [Not Recovered/Not Resolved]
  - Mass [Unknown]
  - Uterine leiomyoma [Unknown]

NARRATIVE: CASE EVENT DATE: 20120823
